FAERS Safety Report 4743959-5 (Version None)
Quarter: 2005Q3

REPORT INFORMATION
  Report Type: 
  Country: None (occurrence: None)
  Receive Date: 20050810
  Receipt Date: 20050810
  Transmission Date: 20060218
  Serious: Yes (Death)
  Sender: FDA-Public Use
  Company Number: None

PATIENT
  Age: 4 Month
  Sex: Female
  Weight: 50 kg

DRUGS (8)
  1. ISONIAZID [Suspect]
     Dosage: 50 MG QD PO
     Route: 048
     Dates: start: 20050628, end: 20050703
  2. PLACEBO [Suspect]
     Dosage: 50 MG QD PO
     Route: 048
     Dates: start: 20050628, end: 20050703
  3. TRIMETHOPRIM [Suspect]
     Dosage: 3.5 ML QD PO
     Route: 048
     Dates: start: 20050628, end: 20050703
  4. SULFAMETHOXAZOLE [Suspect]
     Dosage: 3.5 ML QD PO
     Route: 048
     Dates: start: 20050628, end: 20050703
  5. MULTI-VITAMIN [Concomitant]
  6. FLUCONAZOLE [Concomitant]
  7. DELATAVIR [Concomitant]
  8. NYSTATIN [Concomitant]

REACTIONS (1)
  - INFLUENZA [None]
